FAERS Safety Report 16744753 (Version 1)
Quarter: 2019Q3

REPORT INFORMATION
  Report Type: Report from Study
  Country: MX (occurrence: MX)
  Receive Date: 20190827
  Receipt Date: 20190827
  Transmission Date: 20191005
  Serious: Yes (Death, Other)
  Sender: FDA-Public Use
  Company Number: MX-BRISTOL-MYERS SQUIBB COMPANY-BMS-2019-083760

PATIENT
  Age: 58 Year
  Sex: Male

DRUGS (1)
  1. DASATINIB. [Suspect]
     Active Substance: DASATINIB
     Indication: CHRONIC MYELOID LEUKAEMIA
     Dosage: UNK UNK,
     Route: 048
     Dates: start: 20181226, end: 20190820

REACTIONS (3)
  - Platelet count decreased [Unknown]
  - Pulmonary oedema [Fatal]
  - Dyspnoea [Fatal]

NARRATIVE: CASE EVENT DATE: 20190821
